FAERS Safety Report 8208942-6 (Version None)
Quarter: 2012Q1

REPORT INFORMATION
  Report Type: 
  Country: None (occurrence: None)
  Receive Date: 20120314
  Receipt Date: 20120302
  Transmission Date: 20120608
  Serious: Yes (Hospitalization, Other)
  Sender: FDA-Public Use
  Company Number: US-BAYER-2011-103580

PATIENT
  Age: 24 Year
  Sex: Female
  Weight: 62 kg

DRUGS (24)
  1. LORTAB [Concomitant]
     Dosage: UNK
  2. AMBIEN [Concomitant]
     Dosage: UNK
     Dates: end: 20100106
  3. ATENOLOL [Concomitant]
     Dosage: 12.5 MG, HS
     Route: 048
  4. PROMETHAZINE [Concomitant]
     Indication: PROPHYLAXIS OF NAUSEA AND VOMITING
     Dosage: 25 MG, UNK
     Dates: start: 20091013
  5. PROMETHAZINE [Concomitant]
     Dosage: 25 MG, PRN
  6. AUGMENTIN '125' [Concomitant]
     Dosage: UNK
  7. FOLIC ACID [Concomitant]
     Dosage: UNK
     Dates: start: 20100524
  8. TOPAMAX [Concomitant]
     Dosage: 100 MG, BID
     Dates: start: 20100930
  9. AMBIEN [Concomitant]
     Dosage: 5 MG, UNK
     Dates: start: 20100123, end: 20100501
  10. WHOLE BLOOD [Concomitant]
     Indication: ANAEMIA
     Dosage: UNK
     Dates: start: 20091125
  11. CLONAZEPAM [Concomitant]
     Dosage: 05 MG, BID IF NEEDED
     Route: 048
  12. YASMIN [Suspect]
     Indication: ACNE
     Dosage: UNK
     Dates: start: 20090101
  13. PHENERGAN [Concomitant]
     Dosage: UNK
  14. TORADOL [Concomitant]
     Dosage: UNK
     Route: 042
     Dates: start: 20091013
  15. YASMIN [Suspect]
     Indication: MENSTRUAL CYCLE MANAGEMENT
     Dosage: UNK
     Dates: start: 20070101, end: 20080101
  16. CEFAZOLIN [Concomitant]
     Indication: PNEUMONIA
     Dosage: UNK
  17. AMBIEN [Concomitant]
     Dosage: 10 MG, UNK
     Dates: start: 20100108, end: 20100122
  18. YASMIN [Suspect]
     Indication: CONTRACEPTION
     Dosage: UNK
     Route: 048
     Dates: start: 20010101, end: 20030101
  19. REGLAN [Concomitant]
     Dosage: UNK
     Route: 041
     Dates: start: 20091013
  20. TOPAMAX [Concomitant]
     Dosage: 50 MG, BID
     Dates: start: 20100922, end: 20100929
  21. ATENOLOL [Concomitant]
     Dosage: 25 MG, OM
  22. HYDROCHLOROTHIAZIDE [Concomitant]
     Indication: HYPERTENSION
     Dosage: 25 MG, QD
     Route: 048
  23. ACETAMINOPHEN W/ CODEINE [Concomitant]
     Indication: PAIN
     Dosage: 300 MG/30 MG, 1 TABLET EVERY 6 HOURS AS NEEDED
     Dates: start: 20091013
  24. ENALAPRIL MALEATE [Concomitant]
     Indication: HYPERTENSION
     Dosage: UNK
     Dates: start: 20100922

REACTIONS (7)
  - ABORTION SPONTANEOUS [None]
  - EMOTIONAL DISTRESS [None]
  - GRAND MAL CONVULSION [None]
  - PAIN [None]
  - PANCREATIC PSEUDOCYST [None]
  - PANCREATITIS [None]
  - INJURY [None]
